FAERS Safety Report 4496556-3 (Version None)
Quarter: 2004Q4

REPORT INFORMATION
  Report Type: 
  Country: None (occurrence: None)
  Receive Date: 20041109
  Receipt Date: 20041028
  Transmission Date: 20050328
  Serious: Yes (Other)
  Sender: FDA-Public Use
  Company Number: PL-JNJFOC-20041101664

PATIENT
  Sex: Female
  Weight: 70 kg

DRUGS (1)
  1. RISPOLEPT [Suspect]
     Dosage: DOSE: 3-4 MG
     Route: 049

REACTIONS (5)
  - MASKED FACIES [None]
  - MYASTHENIC SYNDROME [None]
  - SALIVARY HYPERSECRETION [None]
  - SLEEP DISORDER [None]
  - TONGUE PARALYSIS [None]
